FAERS Safety Report 9825557 (Version 8)
Quarter: 2016Q1

REPORT INFORMATION
  Report Type: Report from Study
  Country: CA (occurrence: CA)
  Receive Date: 20140117
  Receipt Date: 20160208
  Transmission Date: 20160526
  Serious: Yes (Hospitalization, Other)
  Sender: FDA-Public Use
  Company Number: CA-ROCHE-1335052

PATIENT
  Sex: Female
  Weight: 68 kg

DRUGS (8)
  1. TYLENOL WITH CODEINE [Concomitant]
     Active Substance: ACETAMINOPHEN\CODEINE PHOSPHATE
  2. ACTEMRA [Suspect]
     Active Substance: TOCILIZUMAB
     Indication: RHEUMATOID ARTHRITIS
     Route: 042
     Dates: start: 20120504
  3. PREDNISONE. [Concomitant]
     Active Substance: PREDNISONE
  4. ACTEMRA [Suspect]
     Active Substance: TOCILIZUMAB
     Route: 042
     Dates: start: 20140723, end: 20151222
  5. PAROXETINE [Concomitant]
     Active Substance: PAROXETINE\PAROXETINE HYDROCHLORIDE
  6. ACTEMRA [Suspect]
     Active Substance: TOCILIZUMAB
     Route: 042
     Dates: start: 20130821
  7. ARAVA [Concomitant]
     Active Substance: LEFLUNOMIDE
  8. ARTHROTEC [Concomitant]
     Active Substance: DICLOFENAC SODIUM\MISOPROSTOL

REACTIONS (6)
  - Hepatic enzyme increased [Recovered/Resolved]
  - Diverticulitis [Unknown]
  - Abscess rupture [Unknown]
  - Haemoglobin decreased [Recovered/Resolved]
  - Tooth disorder [Unknown]
  - Weight decreased [Recovering/Resolving]
